FAERS Safety Report 17110837 (Version 2)
Quarter: 2019Q4

REPORT INFORMATION
  Report Type: Spontaneous
  Country: FR (occurrence: FR)
  Receive Date: 20191204
  Receipt Date: 20191230
  Transmission Date: 20200122
  Serious: Yes (Hospitalization, Other)
  Sender: FDA-Public Use
  Company Number: NVSC2019FR056134

PATIENT
  Age: 61 Year
  Sex: Male
  Weight: 72.4 kg

DRUGS (1)
  1. GILENYA [Suspect]
     Active Substance: FINGOLIMOD HYDROCHLORIDE
     Indication: MULTIPLE SCLEROSIS
     Dosage: 0.5 MG, QD
     Route: 048

REACTIONS (10)
  - Metastases to peritoneum [Unknown]
  - Urinary tract infection [Unknown]
  - Metastases to liver [Unknown]
  - Detrusor sphincter dyssynergia [Unknown]
  - Nervous system disorder [Unknown]
  - Urinary incontinence [Unknown]
  - Adenocarcinoma of colon [Unknown]
  - Constipation [Unknown]
  - Off label use [Unknown]
  - Fall [Unknown]

NARRATIVE: CASE EVENT DATE: 201908
